FAERS Safety Report 5476586-5 (Version None)
Quarter: 2007Q4

REPORT INFORMATION
  Report Type: 
  Country: None (occurrence: None)
  Receive Date: 20071004
  Receipt Date: 20070926
  Transmission Date: 20080405
  Serious: Yes (Hospitalization, Disabling, Other)
  Sender: FDA-Public Use
  Company Number: PHBS2006GB11287

PATIENT
  Age: 84 Year
  Sex: Male

DRUGS (13)
  1. COMTESS [Suspect]
     Indication: PARKINSON'S DISEASE
     Dosage: 200 MG, QD
     Route: 048
     Dates: start: 20060718
  2. COMTESS [Suspect]
     Dosage: 200 MG, BID
     Route: 048
     Dates: start: 20060719, end: 20060719
  3. COMTESS [Suspect]
     Dosage: 200 MG, TID
     Route: 048
     Dates: start: 20060720, end: 20060720
  4. WARFARIN (NGX) [Suspect]
  5. MADOPAR [Concomitant]
     Dosage: 525 MG/D
     Route: 048
  6. QUININE SULFATE [Concomitant]
  7. RAMIPRIL [Concomitant]
  8. FELODIPINE [Concomitant]
     Dosage: 5 UNK, UNK
  9. AMIODARONE HYDROCHLORIDE [Concomitant]
     Dosage: 200 UNK, UNK
  10. FUROSEMIDE [Concomitant]
     Dosage: 40 UNK, UNK
  11. TADALAFIL [Concomitant]
     Dosage: 20 UNK, UNK
  12. ALSASOLYN MR [Concomitant]
  13. DIGOXIN [Concomitant]
     Dosage: 125 UNK, UNK

REACTIONS (4)
  - CONTUSION [None]
  - DRUG INTERACTION [None]
  - INTERNATIONAL NORMALISED RATIO INCREASED [None]
  - RECTAL HAEMORRHAGE [None]
